FAERS Safety Report 8503422-2 (Version None)
Quarter: 2012Q3

REPORT INFORMATION
  Report Type: 
  Country: None (occurrence: None)
  Receive Date: 20120702
  Receipt Date: 20120614
  Transmission Date: 20120928
  Serious: Yes (Hospitalization)
  Sender: FDA-Public Use
  Company Number: 2012MA007542

PATIENT
  Age: 71 Year
  Sex: Female

DRUGS (8)
  1. METFORMIN HYDROCHLORIDE [Concomitant]
  2. ALENDRONATE SODIUM [Concomitant]
  3. DEXAMETHASONE [Concomitant]
  4. DOCETAXEL [Concomitant]
  5. GEMCITABINE HYDROCHLORIDE [Suspect]
     Indication: BREAST CANCER METASTATIC
     Dosage: 1600 MG;QD;IV
     Route: 042
     Dates: start: 20120530, end: 20120530
  6. METFORMIN HYDROCHLORIDE [Concomitant]
  7. ALENDRONATE SODIUM [Concomitant]
  8. ONDANSETRON [Concomitant]

REACTIONS (1)
  - TOXIC SKIN ERUPTION [None]
